FAERS Safety Report 16651198 (Version 3)
Quarter: 2019Q3

REPORT INFORMATION
  Report Type: Report from Study
  Country: US (occurrence: US)
  Receive Date: 20190731
  Receipt Date: 20190930
  Transmission Date: 20191004
  Serious: Yes (Life-Threatening, Hospitalization, Other)
  Sender: FDA-Public Use
  Company Number: PHEH2019US031346

PATIENT
  Sex: Male

DRUGS (1)
  1. ENTRESTO [Suspect]
     Active Substance: SACUBITRIL\VALSARTAN
     Indication: PRODUCT USED FOR UNKNOWN INDICATION
     Dosage: UNK
     Route: 048

REACTIONS (16)
  - Cardiac arrest [Unknown]
  - Arrhythmia [Unknown]
  - Ventricular extrasystoles [Unknown]
  - Chest pain [Unknown]
  - Chest discomfort [Unknown]
  - Lethargy [Unknown]
  - Restlessness [Unknown]
  - Heart rate irregular [Unknown]
  - Angina pectoris [Unknown]
  - Swelling [Unknown]
  - Meningitis [Unknown]
  - Cardiac valve disease [Unknown]
  - Peripheral vascular disorder [Unknown]
  - Coronary artery occlusion [Unknown]
  - Fatigue [Unknown]
  - Cardiomyopathy [Unknown]
